FAERS Safety Report 7070922-4 (Version None)
Quarter: 2010Q4

REPORT INFORMATION
  Report Type: 
  Country: None (occurrence: None)
  Receive Date: 20101021
  Receipt Date: 20101005
  Transmission Date: 20110411
  Serious: Yes (Other)
  Sender: FDA-Public Use
  Company Number: 019912

PATIENT
  Sex: Female
  Weight: 98 kg

DRUGS (3)
  1. CIMZIA [Suspect]
     Indication: CROHN'S DISEASE
     Dosage: (400 MG 1X/MONTH SUBCUTANEOUS)
     Route: 058
     Dates: start: 20100707
  2. IMURAN [Concomitant]
  3. PRENATAL VITAMINS /01549301/ [Concomitant]

REACTIONS (1)
  - HERPES ZOSTER [None]
